FAERS Safety Report 10902281 (Version 1)
Quarter: 2015Q1

REPORT INFORMATION
  Report Type: Report from Study
  Country: BR (occurrence: BR)
  Receive Date: 20150310
  Receipt Date: 20150310
  Transmission Date: 20150721
  Serious: Yes (Disabling, Other)
  Sender: FDA-Public Use
  Company Number: BR-ABBVIE-15K-020-1356365-00

PATIENT
  Sex: Male
  Weight: 90 kg

DRUGS (8)
  1. METFORMIN [Concomitant]
     Active Substance: METFORMIN HYDROCHLORIDE
     Indication: DIABETES MELLITUS
     Route: 048
     Dates: start: 2013
  2. CARVEDILOL. [Concomitant]
     Active Substance: CARVEDILOL
     Indication: CARDIAC DISORDER
     Route: 048
     Dates: start: 2007
  3. HUMIRA [Suspect]
     Active Substance: ADALIMUMAB
     Indication: RHEUMATOID ARTHRITIS
     Route: 058
     Dates: start: 20140401
  4. HUMIRA [Suspect]
     Active Substance: ADALIMUMAB
     Route: 058
  5. AAS [Concomitant]
     Active Substance: ASPIRIN
     Indication: CARDIAC DISORDER
     Route: 048
     Dates: start: 2007
  6. BROMOPRIDE [Concomitant]
     Active Substance: BROMOPRIDE
     Indication: GASTRIC DISORDER
     Route: 048
     Dates: start: 2007
  7. ENALAPRIL [Concomitant]
     Active Substance: ENALAPRIL
     Indication: CARDIAC DISORDER
     Route: 048
     Dates: start: 2007
  8. CIPROFLOXACIN. [Concomitant]
     Active Substance: CIPROFLOXACIN
     Indication: PRODUCT USED FOR UNKNOWN INDICATION
     Route: 048
     Dates: start: 2007

REACTIONS (6)
  - Hand deformity [Unknown]
  - Abasia [Recovering/Resolving]
  - Pain in extremity [Recovering/Resolving]
  - Drug administered at inappropriate site [Unknown]
  - Arthralgia [Recovering/Resolving]
  - Foot deformity [Unknown]
